FAERS Safety Report 21071307 (Version 3)
Quarter: 2022Q3

REPORT INFORMATION
  Report Type: Spontaneous
  Country: JP (occurrence: JP)
  Receive Date: 20220712
  Receipt Date: 20220725
  Transmission Date: 20221027
  Serious: Yes (Death, Other)
  Sender: FDA-Public Use
  Company Number: JP-OTSUKA-2022_035692

PATIENT
  Age: 10 Decade
  Sex: Female

DRUGS (3)
  1. TOLVAPTAN [Suspect]
     Active Substance: TOLVAPTAN
     Indication: Cardiac failure congestive
     Dosage: 16 MG/DAY
     Route: 041
  2. TOLVAPTAN [Suspect]
     Active Substance: TOLVAPTAN
     Dosage: 8 MG/DAY
     Route: 041
  3. LASIX [Concomitant]
     Active Substance: FUROSEMIDE
     Indication: Product used for unknown indication
     Dosage: 120 MG/DAY
     Route: 042

REACTIONS (2)
  - Cardiac failure [Fatal]
  - Acute kidney injury [Fatal]
